APPROVED DRUG PRODUCT: DILTIAZEM HYDROCHLORIDE
Active Ingredient: DILTIAZEM HYDROCHLORIDE
Strength: 5MG/ML
Dosage Form/Route: INJECTABLE;INJECTION
Application: A074894 | Product #001
Applicant: DR REDDYS LABORATORIES LTD
Approved: Aug 26, 1997 | RLD: No | RS: No | Type: DISCN